FAERS Safety Report 8531576 (Version 4)
Quarter: 2013Q1

REPORT INFORMATION
  Report Type: Report from Study
  Country: IT (occurrence: IT)
  Receive Date: 20120426
  Receipt Date: 20130314
  Transmission Date: 20140127
  Serious: Yes (Hospitalization)
  Sender: FDA-Public Use
  Company Number: IT-JNJFOC-20120407544

PATIENT
  Age: 45 Year
  Sex: Male
  Weight: 98 kg

DRUGS (18)
  1. PALIPERIDONE PALMITATE [Suspect]
     Indication: SCHIZOPHRENIA
     Route: 030
     Dates: start: 20120328
  2. PALIPERIDONE PALMITATE [Suspect]
     Indication: SCHIZOPHRENIA
     Route: 030
     Dates: start: 20111128
  3. CHLORDESMETHYLDIAZEPAM [Concomitant]
     Indication: TENSION
     Dates: start: 20120404
  4. CHLORDESMETHYLDIAZEPAM [Concomitant]
     Indication: TENSION
     Dates: start: 20120312
  5. LEVOMEPROMAZINE [Concomitant]
     Indication: TENSION
     Dates: start: 20120327
  6. LEVOMEPROMAZINE [Concomitant]
     Indication: TENSION
     Dates: start: 20120312
  7. LEVOMEPROMAZINE [Concomitant]
     Indication: TENSION
     Dates: start: 20120323
  8. LEVOMEPROMAZINE [Concomitant]
     Indication: TENSION
     Dates: start: 20120326
  9. LEVOMEPROMAZINE [Concomitant]
     Indication: TENSION
     Dates: start: 20120404
  10. LEVOMEPROMAZINE [Concomitant]
     Indication: TENSION
     Dates: start: 20120330
  11. LEVOMEPROMAZINE [Concomitant]
     Indication: TENSION
     Dates: start: 20120328
  12. LEVOMEPROMAZINE [Concomitant]
     Indication: INSOMNIA
     Dates: start: 20120323
  13. LEVOMEPROMAZINE [Concomitant]
     Indication: INSOMNIA
     Dates: start: 20120312
  14. LEVOMEPROMAZINE [Concomitant]
     Indication: INSOMNIA
     Dates: start: 20120326
  15. LEVOMEPROMAZINE [Concomitant]
     Indication: INSOMNIA
     Dates: start: 20120327
  16. LEVOMEPROMAZINE [Concomitant]
     Indication: INSOMNIA
     Dates: start: 20120328
  17. LEVOMEPROMAZINE [Concomitant]
     Indication: INSOMNIA
     Dates: start: 20120404
  18. LEVOMEPROMAZINE [Concomitant]
     Indication: INSOMNIA
     Dates: start: 20120330

REACTIONS (1)
  - Psychotic disorder [Recovered/Resolved]
